FAERS Safety Report 8244710-7 (Version None)
Quarter: 2012Q1

REPORT INFORMATION
  Report Type: 
  Country: None (occurrence: None)
  Receive Date: 20120329
  Receipt Date: 20110208
  Transmission Date: 20120608
  Serious: No
  Sender: FDA-Public Use
  Company Number: US-MYLANLABS-2011S1002891

PATIENT
  Age: 38 Year
  Sex: Male
  Weight: 87.54 kg

DRUGS (5)
  1. FUROSET [Concomitant]
  2. METHADONE HCL [Concomitant]
  3. VALIUM [Concomitant]
  4. FENTANYL-100 [Suspect]
     Indication: PAIN
     Dosage: Q72 HOURS
     Route: 062
  5. FENTANYL-100 [Suspect]
     Dosage: Q 72 HOURS
     Route: 062

REACTIONS (4)
  - HYPERHIDROSIS [None]
  - PAIN [None]
  - DRUG WITHDRAWAL SYNDROME [None]
  - INSOMNIA [None]
